FAERS Safety Report 13098741 (Version 3)
Quarter: 2017Q1

REPORT INFORMATION
  Report Type: Report from Study
  Country: US (occurrence: US)
  Receive Date: 20170109
  Receipt Date: 20170129
  Transmission Date: 20170428
  Serious: Yes (Hospitalization, Other)
  Sender: FDA-Public Use
  Company Number: US-BIOGEN-2017BI00339013

PATIENT
  Sex: Female

DRUGS (1)
  1. TECFIDERA [Suspect]
     Active Substance: DIMETHYL FUMARATE
     Indication: MULTIPLE SCLEROSIS
     Route: 048
     Dates: start: 20141226

REACTIONS (12)
  - Diplegia [Unknown]
  - Malaise [Not Recovered/Not Resolved]
  - Hypoaesthesia [Unknown]
  - Cerebrovascular accident [Unknown]
  - Fatigue [Unknown]
  - Cognitive disorder [Recovered/Resolved]
  - Cystitis [Recovered/Resolved]
  - Aneurysm [Unknown]
  - Urinary retention [Unknown]
  - Nasopharyngitis [Recovered/Resolved]
  - Multiple sclerosis [Unknown]
  - Infection susceptibility increased [Unknown]
